FAERS Safety Report 17471987 (Version 3)
Quarter: 2020Q1

REPORT INFORMATION
  Report Type: Spontaneous
  Country: US (occurrence: US)
  Receive Date: 20200228
  Receipt Date: 20200317
  Transmission Date: 20200409
  Serious: Yes (Death, Hospitalization, Other)
  Sender: FDA-Public Use
  Company Number: US-UNITED THERAPEUTICS-UNT-2020-001791

PATIENT
  Age: 50 Year
  Sex: Female
  Weight: 102.4 kg

DRUGS (6)
  1. TYVASO [Suspect]
     Active Substance: TREPROSTINIL
     Indication: PULMONARY ARTERIAL HYPERTENSION
     Dosage: 18-54 ?G, QID
     Dates: start: 20191209
  2. TYVASO [Suspect]
     Active Substance: TREPROSTINIL
     Dosage: 72 ?G, UNK
  3. ADEMPAS [Suspect]
     Active Substance: RIOCIGUAT
     Dosage: 0.5 MG, TID
     Route: 065
  4. TYVASO [Suspect]
     Active Substance: TREPROSTINIL
     Dosage: UNK
  5. TYVASO [Suspect]
     Active Substance: TREPROSTINIL
     Dosage: 54 ?G, UNK
  6. ADEMPAS [Suspect]
     Active Substance: RIOCIGUAT
     Indication: PRODUCT USED FOR UNKNOWN INDICATION
     Dosage: 1 MG, UNK
     Route: 065

REACTIONS (15)
  - Cardiac failure congestive [Unknown]
  - Dehydration [Unknown]
  - Off label use [Unknown]
  - Taste disorder [Unknown]
  - Weight increased [Unknown]
  - Oedema peripheral [Unknown]
  - Nausea [Unknown]
  - Ascites [Unknown]
  - Tachycardia [Unknown]
  - Blood bilirubin increased [Unknown]
  - Pulmonary pain [Unknown]
  - Death [Fatal]
  - Dyspnoea [Unknown]
  - Chest pain [Unknown]
  - Blood pressure decreased [Unknown]

NARRATIVE: CASE EVENT DATE: 202001
